FAERS Safety Report 23234914 (Version 1)
Quarter: 2023Q4

REPORT INFORMATION
  Report Type: Spontaneous
  Country: US (occurrence: None)
  Receive Date: 20231127
  Receipt Date: 20231127
  Transmission Date: 20240110
  Serious: Yes (Other)
  Sender: FDA-Public Use
  Company Number: None

PATIENT
  Sex: 0

DRUGS (1)
  1. MIFEPREX [Suspect]
     Active Substance: MIFEPRISTONE

REACTIONS (1)
  - Pregnancy test negative [None]

NARRATIVE: CASE EVENT DATE: 20231012
